FAERS Safety Report 8775287 (Version 1)
Quarter: 2012Q4

REPORT INFORMATION
  Report Type: Report from Study
  Country: US (occurrence: US)
  Receive Date: 20120910
  Receipt Date: 20120910
  Transmission Date: 20130627
  Serious: Yes (Hospitalization)
  Sender: FDA-Public Use
  Company Number: US-ASTRAZENECA-2012SE54228

PATIENT
  Sex: Female
  Weight: 84 kg

DRUGS (22)
  1. DIPHENHYDRAMINE [Concomitant]
     Indication: MULTIPLE ALLERGIES
     Route: 048
     Dates: start: 20111219
  2. CYMBALTA [Concomitant]
     Indication: ARTHRALGIA
     Route: 048
     Dates: start: 20120204
  3. DOXEPIN [Concomitant]
     Indication: ANXIETY
     Route: 048
     Dates: start: 20120220
  4. PHENEGRAN [Concomitant]
     Indication: NAUSEA
     Route: 048
     Dates: start: 20120309
  5. ANTIVERT [Concomitant]
     Indication: VERTIGO
     Route: 048
     Dates: start: 20120309
  6. METHOCARBAMOL [Concomitant]
     Indication: MUSCLE RELAXANT THERAPY
     Route: 048
     Dates: start: 20120420
  7. BUSPAR [Concomitant]
     Indication: ANXIETY
     Route: 048
     Dates: start: 20120413
  8. CELEBREX [Concomitant]
     Indication: ARTHRITIS
     Route: 048
     Dates: start: 20120204
  9. HYDROXYZINE PAMOA [Concomitant]
     Indication: INSOMNIA
     Route: 048
     Dates: start: 20120607
  10. MELOXICAM [Concomitant]
     Indication: ARTHRITIS
     Route: 048
     Dates: start: 20120614
  11. XANAX [Concomitant]
     Indication: ANXIETY
     Route: 048
     Dates: start: 20120607
  12. XANAX [Concomitant]
     Indication: ANXIETY
     Route: 048
     Dates: start: 20120614
  13. OXYCODONE/ACETAMINOPHEN [Concomitant]
     Indication: PAIN
     Route: 048
     Dates: start: 20120420
  14. NKTR-118 [Suspect]
     Indication: CONSTIPATION
     Route: 048
     Dates: start: 20111117, end: 20120722
  15. LISINOPRIL [Suspect]
     Indication: HYPERTENSION
     Route: 048
     Dates: start: 20120411, end: 20120424
  16. LISINOPRIL [Suspect]
     Indication: HYPERTENSION
     Route: 048
     Dates: start: 20120425, end: 20120723
  17. CLONAZEPAM [Concomitant]
     Indication: ANXIETY
     Route: 048
     Dates: start: 200801
  18. DICLOFENAC [Concomitant]
     Indication: ARTHRITIS
     Route: 048
     Dates: start: 200501
  19. GABAPENTIN [Concomitant]
     Indication: FIBROMYALGIA
     Route: 048
     Dates: start: 200801
  20. ALLOPURINOL [Concomitant]
     Indication: GOUT
     Route: 048
     Dates: start: 2010
  21. RANITIDINE [Concomitant]
     Indication: GASTROOESOPHAGEAL REFLUX DISEASE
     Route: 048
     Dates: start: 2011
  22. VIIBRYD [Concomitant]
     Indication: DEPRESSION
     Route: 048
     Dates: start: 20120101

REACTIONS (1)
  - Syncope [Recovered/Resolved]
